FAERS Safety Report 8075816-3 (Version None)
Quarter: 2012Q1

REPORT INFORMATION
  Report Type: 
  Country: None (occurrence: None)
  Receive Date: 20120127
  Receipt Date: 20120118
  Transmission Date: 20120608
  Serious: Yes (Other)
  Sender: FDA-Public Use
  Company Number: FR-PFIZER INC-2011218720

PATIENT
  Age: 86 Year
  Sex: Male

DRUGS (7)
  1. CORDARONE [Suspect]
     Dosage: 200 MG, PER DAY, 4 TIMES PER WEEK
     Route: 048
     Dates: start: 20080101, end: 20110101
  2. CORDARONE [Suspect]
     Dosage: 200 MG DAILY, 3 TIMES PER WEEK
     Route: 048
     Dates: start: 20110701, end: 20110901
  3. EZETIMIBE [Concomitant]
     Dosage: UNK
     Dates: start: 20080101, end: 20110101
  4. CORDARONE [Suspect]
     Indication: ATRIAL FIBRILLATION
     Dosage: 200 MG PER DAY, 5 TIMES PER WEEK
     Route: 048
     Dates: start: 20040101, end: 20080101
  5. PERINDOPRIL ERBUMINE [Concomitant]
     Dosage: UNK
     Dates: start: 20030101, end: 20110101
  6. TOCO 500 [Concomitant]
     Dosage: UNK
     Dates: start: 20080101
  7. ASPIRIN [Concomitant]
     Dosage: UNK
     Dates: start: 20050101

REACTIONS (5)
  - FATIGUE [None]
  - WEIGHT DECREASED [None]
  - ENCEPHALOPATHY [None]
  - HEPATITIS [None]
  - JAUNDICE [None]
